FAERS Safety Report 24540570 (Version 1)
Quarter: 2024Q4

REPORT INFORMATION
  Report Type: Spontaneous
  Country: ES (occurrence: ES)
  Receive Date: 20241023
  Receipt Date: 20241023
  Transmission Date: 20250115
  Serious: Yes (Other)
  Sender: SANDOZ
  Company Number: ES-002147023-PHHY2019ES116349

PATIENT
  Age: 61 Year
  Sex: Male
  Weight: 85 kg

DRUGS (4)
  1. ANAFRANIL [Interacting]
     Active Substance: CLOMIPRAMINE HYDROCHLORIDE
     Indication: Product used for unknown indication
     Dosage: 4 DF, QD
     Route: 048
     Dates: start: 2018
  2. DUTASTERIDE [Interacting]
     Active Substance: DUTASTERIDE
     Indication: Product used for unknown indication
     Dosage: UNK
     Route: 048
  3. CARBIDOPA\LEVODOPA [Interacting]
     Active Substance: CARBIDOPA\LEVODOPA
     Indication: Product used for unknown indication
     Dosage: 4 DF, QD
     Route: 048
     Dates: start: 2018
  4. XADAGO [Interacting]
     Active Substance: SAFINAMIDE MESYLATE
     Indication: Product used for unknown indication
     Dosage: 100 MG, QD
     Route: 048
     Dates: start: 2018, end: 201810

REACTIONS (4)
  - Aggression [Recovered/Resolved]
  - Tremor [Recovered/Resolved]
  - Hallucination [Recovered/Resolved]
  - Product prescribing error [Recovered/Resolved]

NARRATIVE: CASE EVENT DATE: 20181015
